FAERS Safety Report 4761932-8 (Version None)
Quarter: 2005Q3

REPORT INFORMATION
  Report Type: 
  Country: None (occurrence: None)
  Receive Date: 20050831
  Receipt Date: 20050201
  Transmission Date: 20060218
  Serious: Yes (Other)
  Sender: FDA-Public Use
  Company Number: US-JNJFOC-20041201475

PATIENT
  Age: 48 Year
  Sex: Female
  Weight: 87.9 kg

DRUGS (2)
  1. ORTHOCLONE OKT3 (MUROMONAB-CD3) INJECTION [Suspect]
     Indication: HEART TRANSPLANT REJECTION
     Dosage: 5 MG, 1 IN 1 DAY, INTRAVENOUS
     Route: 042
     Dates: start: 20041124, end: 20041207
  2. SOLU-MEDROL [Concomitant]

REACTIONS (3)
  - DRUG INEFFECTIVE [None]
  - RENAL FAILURE [None]
  - RESPIRATORY FAILURE [None]
